FAERS Safety Report 7193958-1 (Version None)
Quarter: 2010Q4

REPORT INFORMATION
  Report Type: 
  Country: None (occurrence: None)
  Receive Date: 20101223
  Receipt Date: 20100913
  Transmission Date: 20110411
  Serious: No
  Sender: FDA-Public Use
  Company Number: US-AMGEN-KDL437920

PATIENT

DRUGS (5)
  1. ENBREL [Suspect]
     Indication: PRODUCT USED FOR UNKNOWN INDICATION
     Dosage: 50 MG, QWK
     Route: 058
  2. METHOTREXATE [Concomitant]
     Dosage: 2.5 MG, UNK
  3. FOLIC ACID [Concomitant]
     Dosage: 1 MG, UNK
  4. TOPROL-XL [Concomitant]
     Dosage: 25 MG, UNK
  5. ERGOCALCIFEROL [Concomitant]
     Dosage: 400 IU, UNK

REACTIONS (5)
  - COUGH [None]
  - HEADACHE [None]
  - OROPHARYNGEAL PAIN [None]
  - RHINORRHOEA [None]
  - WEIGHT INCREASED [None]
